FAERS Safety Report 7179605-3 (Version None)
Quarter: 2010Q4

REPORT INFORMATION
  Report Type: 
  Country: None (occurrence: None)
  Receive Date: 20101221
  Receipt Date: 20100422
  Transmission Date: 20110411
  Serious: Yes (Death, Other)
  Sender: FDA-Public Use
  Company Number: US-ROCHE-701153

PATIENT
  Age: 30 Month
  Sex: Male

DRUGS (5)
  1. OSELTAMIVIR [Suspect]
     Route: 048
     Dates: start: 20070311, end: 20070317
  2. OSELTAMIVIR [Suspect]
     Route: 048
     Dates: start: 20070530, end: 20070828
  3. DECADRON [Concomitant]
  4. CYCLOSPORINE [Concomitant]
  5. VP 16 [Concomitant]

REACTIONS (4)
  - MULTI-ORGAN FAILURE [None]
  - PANCYTOPENIA [None]
  - PATHOGEN RESISTANCE [None]
  - PNEUMONIA [None]
